FAERS Safety Report 5497671-8 (Version None)
Quarter: 2007Q4

REPORT INFORMATION
  Report Type: 
  Country: None (occurrence: None)
  Receive Date: 20071025
  Receipt Date: 20070202
  Transmission Date: 20080405
  Serious: No
  Sender: FDA-Public Use
  Company Number: A0638156A

PATIENT
  Sex: Female

DRUGS (8)
  1. ADVAIR DISKUS 100/50 [Suspect]
     Indication: CHRONIC OBSTRUCTIVE PULMONARY DISEASE
     Dosage: 1PUFF TWICE PER DAY
     Route: 055
     Dates: start: 20070126
  2. ALBUTEROL [Suspect]
     Indication: ASTHMA
     Route: 055
  3. HEART MEDICATION [Concomitant]
  4. SYNTHROID [Concomitant]
  5. CELEBREX [Concomitant]
  6. NEURONTIN [Concomitant]
  7. FLONASE [Concomitant]
  8. ALBUTEROL [Concomitant]

REACTIONS (2)
  - DRUG INEFFECTIVE [None]
  - DYSPHONIA [None]
